FAERS Safety Report 8988173 (Version 2)
Quarter: 2013Q1

REPORT INFORMATION
  Report Type: Spontaneous
  Country: US (occurrence: US)
  Receive Date: 20121227
  Receipt Date: 20130115
  Transmission Date: 20140127
  Serious: Yes (Death, Hospitalization, Other)
  Sender: FDA-Public Use
  Company Number: US-ASTELLAS-2012US012637

PATIENT
  Age: 79 Year
  Sex: Female

DRUGS (4)
  1. VESICARE [Suspect]
     Indication: HYPERTONIC BLADDER
     Dosage: 5 MG, UID/QD
     Route: 048
  2. LANTUS [Concomitant]
     Indication: PRODUCT USED FOR UNKNOWN INDICATION
     Dosage: 10 U, UID/QD
     Route: 058
  3. APIDRA [Concomitant]
     Indication: PRODUCT USED FOR UNKNOWN INDICATION
     Dosage: 19 U, UID/QD
     Route: 058
  4. PLAVIX [Concomitant]
     Indication: PRODUCT USED FOR UNKNOWN INDICATION
     Dosage: 75 MG, UID/QD
     Route: 048

REACTIONS (21)
  - Pulmonary fibrosis [Fatal]
  - Macular degeneration [Unknown]
  - Tibia fracture [Unknown]
  - Cardiac failure congestive [Unknown]
  - Chest pain [Unknown]
  - Amnesia [Unknown]
  - Hypoxia [Unknown]
  - Urinary tract disorder [Unknown]
  - Gait disturbance [Unknown]
  - Otitis externa bacterial [Unknown]
  - Ear infection [Unknown]
  - Mammogram abnormal [Unknown]
  - Insomnia [Unknown]
  - Dehydration [Unknown]
  - Malaise [Unknown]
  - Paronychia [Unknown]
  - Fungal infection [Unknown]
  - Weight decreased [Unknown]
  - Fatigue [Unknown]
  - Vomiting [Unknown]
  - Nausea [Unknown]
